FAERS Safety Report 9036541 (Version 1)
Quarter: 2013Q1

REPORT INFORMATION
  Report Type: Report from Study
  Country: US (occurrence: US)
  Receive Date: 20130129
  Receipt Date: 20130129
  Transmission Date: 20140127
  Serious: No
  Sender: FDA-Public Use
  Company Number: US-ABBOTT-12P-163-0898998-00

PATIENT
  Age: 48 Year
  Sex: Female

DRUGS (9)
  1. HUMIRA 40 MG/0.8 ML PEN [Suspect]
     Indication: PSORIASIS
     Dates: end: 20120123
  2. ESTROGEN [Concomitant]
     Indication: HYSTERECTOMY
     Dosage: TWICE DAILY, IN THE MORNING AND AT NIGHT
     Route: 060
  3. PROGESTERONE [Concomitant]
     Indication: HYSTERECTOMY
     Dosage: ONCE DAILY AT NIGHT
     Route: 060
  4. B12 [Concomitant]
     Indication: PRODUCT USED FOR UNKNOWN INDICATION
     Dosage: EVERY ONE AND A HALF WEEKS
     Route: 030
  5. MULTIVITAMINS [Concomitant]
     Indication: PRODUCT USED FOR UNKNOWN INDICATION
  6. FISH OIL [Concomitant]
     Indication: PRODUCT USED FOR UNKNOWN INDICATION
  7. D3 [Concomitant]
     Indication: PRODUCT USED FOR UNKNOWN INDICATION
  8. CALCIUM [Concomitant]
     Indication: PRODUCT USED FOR UNKNOWN INDICATION
  9. ZINC [Concomitant]
     Indication: PRODUCT USED FOR UNKNOWN INDICATION

REACTIONS (16)
  - Palpitations [Not Recovered/Not Resolved]
  - Dysphonia [Unknown]
  - Fatigue [Unknown]
  - Dizziness [Unknown]
  - Dizziness [Unknown]
  - Confusional state [Unknown]
  - Paraesthesia [Unknown]
  - Hypoaesthesia [Unknown]
  - Fatigue [Unknown]
  - Peripheral coldness [Unknown]
  - Headache [Unknown]
  - Decreased appetite [Unknown]
  - Blood pressure increased [Unknown]
  - Blood testosterone decreased [Unknown]
  - Dysarthria [Unknown]
  - Confusional state [Unknown]
